FAERS Safety Report 23587137 (Version 1)
Quarter: 2024Q1

REPORT INFORMATION
  Report Type: Spontaneous
  Country: GB (occurrence: GB)
  Receive Date: 20240301
  Receipt Date: 20240301
  Transmission Date: 20240410
  Serious: Yes (Other)
  Sender: FDA-Public Use
  Company Number: None

PATIENT
  Age: 92 Year
  Sex: Female
  Weight: 73 kg

DRUGS (12)
  1. BACLOFEN [Suspect]
     Active Substance: BACLOFEN
     Indication: Product used for unknown indication
     Dosage: TIME INTERVAL: 0.33333333 DAYS
     Route: 065
     Dates: start: 20240215
  2. ACETAMINOPHEN [Concomitant]
     Active Substance: ACETAMINOPHEN
     Dates: start: 20220920
  3. HYPROMELLOSES [Concomitant]
     Active Substance: HYPROMELLOSES
     Dosage: TO EACH EYE MORNING AND EVENING. CAN BE...
     Dates: start: 20220920
  4. CLOTRIMAZOLE [Concomitant]
     Active Substance: CLOTRIMAZOLE
     Dosage: USE AS DIRECTED BY TVN
     Dates: start: 20231221, end: 20240118
  5. BETAHISTINE [Concomitant]
     Active Substance: BETAHISTINE
     Dosage: TIME INTERVAL: 0.33333333 DAYS
     Dates: start: 20220920
  6. HYDROXOCOBALAMIN [Concomitant]
     Active Substance: HYDROXOCOBALAMIN
     Dates: start: 20220920
  7. ROSUVASTATIN [Concomitant]
     Active Substance: ROSUVASTATIN
     Dosage: 1800
     Dates: start: 20220920
  8. THEICAL-D3 [Concomitant]
     Dates: start: 20230731
  9. OMEPRAZOLE [Concomitant]
     Active Substance: OMEPRAZOLE
     Dosage: 1800
     Dates: start: 20220920
  10. FENBID [Concomitant]
     Dosage: TO BE APPLIED TO THE AFFECTED AREA(S)  TWICE TI...
     Dates: start: 20231102, end: 20240215
  11. DOMPERIDONE [Concomitant]
     Active Substance: DOMPERIDONE
     Dosage: TIME INTERVAL: 0.33333333 DAYS: 0800, 1300, 1800
     Dates: start: 20220920
  12. EDOXABAN [Concomitant]
     Active Substance: EDOXABAN
     Indication: Anticoagulant therapy
     Dates: start: 20230301

REACTIONS (2)
  - Hallucination [Recovered/Resolved]
  - Petit mal epilepsy [Recovered/Resolved]

NARRATIVE: CASE EVENT DATE: 20240220
